FAERS Safety Report 19229564 (Version 1)
Quarter: 2021Q2

REPORT INFORMATION
  Report Type: Spontaneous
  Country: US (occurrence: US)
  Receive Date: 20210506
  Receipt Date: 20210506
  Transmission Date: 20210717
  Serious: Yes (Other)
  Sender: FDA-Public Use
  Company Number: None

PATIENT
  Age: 36 Year
  Sex: Female
  Weight: 63.9 kg

DRUGS (4)
  1. BAMLANIVIMAB AND ETESEVIMAB [Suspect]
     Active Substance: BAMLANIVIMAB\ETESEVIMAB
     Indication: COVID-19
     Dates: start: 20210423, end: 20210423
  2. VITAMIN D [Concomitant]
     Active Substance: VITAMIN D NOS
  3. ZINC. [Concomitant]
     Active Substance: ZINC
  4. VITAMIN C [Concomitant]
     Active Substance: ASCORBIC ACID

REACTIONS (4)
  - Rash [None]
  - Drug ineffective [None]
  - Scab [None]
  - Headache [None]

NARRATIVE: CASE EVENT DATE: 20210424
